FAERS Safety Report 10181318 (Version 1)
Quarter: 2014Q2

REPORT INFORMATION
  Report Type: Spontaneous
  Country: US (occurrence: US)
  Receive Date: 20140519
  Receipt Date: 20140519
  Transmission Date: 20141212
  Serious: No
  Sender: FDA-Public Use
  Company Number: US-AMGEN INC.-USASP2014033429

PATIENT
  Age: 79 Year
  Sex: Female

DRUGS (2)
  1. PROLIA [Suspect]
     Indication: OSTEOPOROSIS
     Dosage: UNK
     Route: 065
  2. SPIRIVA [Concomitant]
     Dosage: UNK

REACTIONS (5)
  - Arthralgia [Unknown]
  - Bone pain [Unknown]
  - Back pain [Unknown]
  - Gait disturbance [Unknown]
  - Pain in extremity [Unknown]
